FAERS Safety Report 25895739 (Version 1)
Quarter: 2025Q4

REPORT INFORMATION
  Report Type: Report from Study
  Country: US (occurrence: US)
  Receive Date: 20251008
  Receipt Date: 20251008
  Transmission Date: 20260118
  Serious: No
  Sender: MALLINCKRODT
  Company Number: US-MALLINCKRODT-MNK202505748

PATIENT
  Sex: Female

DRUGS (3)
  1. CORTICOTROPIN [Suspect]
     Active Substance: CORTICOTROPIN
     Indication: Rheumatoid arthritis
     Dosage: 80 UNITS
  2. CORTICOTROPIN [Suspect]
     Active Substance: CORTICOTROPIN
     Indication: Rheumatoid arthritis
     Dosage: 40 UNITS
  3. KEVZARA [Concomitant]
     Active Substance: SARILUMAB
     Dosage: UNKNOWN

REACTIONS (5)
  - Pruritus [Recovering/Resolving]
  - Anxiety [Unknown]
  - Injection site erythema [Recovered/Resolved]
  - Blood pressure increased [Unknown]
  - Fatigue [Unknown]
